FAERS Safety Report 15345231 (Version 1)
Quarter: 2018Q3

REPORT INFORMATION
  Report Type: Spontaneous
  Country: AU (occurrence: AU)
  Receive Date: 20180903
  Receipt Date: 20180903
  Transmission Date: 20181010
  Serious: Yes (Other)
  Sender: FDA-Public Use
  Company Number: AU-009507513-1808AUS013073

PATIENT
  Age: 21 Year
  Sex: Female
  Weight: 48 kg

DRUGS (2)
  1. NOVASONE [Suspect]
     Active Substance: MOMETASONE FUROATE
     Indication: ECZEMA
     Dosage: USED EVERY TIME ECZEMA SYMPTOMS APPEARED
     Dates: end: 20170501
  2. TACROLIMUS. [Suspect]
     Active Substance: TACROLIMUS
     Dosage: UNK
     Dates: start: 20170530, end: 20170607

REACTIONS (1)
  - Steroid withdrawal syndrome [Recovered/Resolved]

NARRATIVE: CASE EVENT DATE: 20170501
